FAERS Safety Report 7555956-5 (Version None)
Quarter: 2011Q2

REPORT INFORMATION
  Report Type: 
  Country: None (occurrence: None)
  Receive Date: 20110619
  Receipt Date: 20100726
  Transmission Date: 20111010
  Serious: No
  Sender: FDA-Public Use
  Company Number: US-ALLERGAN-1009702US

PATIENT
  Age: 83 Year
  Sex: Female

DRUGS (1)
  1. SANCTURA [Suspect]
     Indication: INCONTINENCE
     Dosage: 20 MG, BID
     Route: 048
     Dates: start: 20100601

REACTIONS (1)
  - MUSCLE SPASMS [None]
